FAERS Safety Report 24399680 (Version 1)
Quarter: 2024Q4

REPORT INFORMATION
  Report Type: Spontaneous
  Country: CA (occurrence: CA)
  Receive Date: 20241005
  Receipt Date: 20241005
  Transmission Date: 20250114
  Serious: Yes (Other)
  Sender: ROCHE
  Company Number: CA-ROCHE-10000097472

PATIENT
  Age: 88 Year
  Sex: Female

DRUGS (1)
  1. ACTEMRA [Suspect]
     Active Substance: TOCILIZUMAB
     Indication: Rheumatoid arthritis
     Dosage: ON 05/SEP/2024: DOSE OF LAST ADMINISTRATION-407MG
     Route: 042

REACTIONS (2)
  - Cyst [Unknown]
  - Incision site discharge [Unknown]
